FAERS Safety Report 13442390 (Version 1)
Quarter: 2017Q2

REPORT INFORMATION
  Report Type: Spontaneous
  Country: US (occurrence: US)
  Receive Date: 20170414
  Receipt Date: 20170414
  Transmission Date: 20170830
  Serious: Yes (Disabling)
  Sender: FDA-Public Use
  Company Number: None

PATIENT
  Age: 84 Year
  Sex: Female
  Weight: 91.63 kg

DRUGS (15)
  1. ASPIRIN. [Concomitant]
     Active Substance: ASPIRIN
  2. TEN^S UNIT [Concomitant]
  3. AMLODIPINE [Concomitant]
     Active Substance: AMLODIPINE BESYLATE
  4. CLONIDINE. [Concomitant]
     Active Substance: CLONIDINE
  5. ALEVE [Concomitant]
     Active Substance: NAPROXEN SODIUM
  6. TOPROL XL [Suspect]
     Active Substance: METOPROLOL SUCCINATE
     Indication: ATRIAL FIBRILLATION
     Dosage: ?          QUANTITY:INLI;?
     Route: 048
     Dates: start: 2003, end: 2003
  7. BENICAR [Concomitant]
     Active Substance: OLMESARTAN MEDOXOMIL
  8. POT CL MICRO [Concomitant]
  9. LEVOTHYROXIN [Concomitant]
     Active Substance: LEVOTHYROXINE
  10. VITAMIN B12 [Concomitant]
     Active Substance: CYANOCOBALAMIN
  11. TRAMADOL HCL [Concomitant]
     Active Substance: TRAMADOL HYDROCHLORIDE
  12. NIACIN. [Concomitant]
     Active Substance: NIACIN
  13. BRAINSTRONG [Concomitant]
  14. METOPROLOL. [Concomitant]
     Active Substance: METOPROLOL
  15. DULCOLAX NOS [Concomitant]
     Active Substance: BISACODYL OR DOCUSATE SODIUM

REACTIONS (4)
  - Dizziness [None]
  - Malaise [None]
  - Disorientation [None]
  - Cardiac disorder [None]

NARRATIVE: CASE EVENT DATE: 2017
